FAERS Safety Report 12437667 (Version 1)
Quarter: 2016Q2

REPORT INFORMATION
  Report Type: Spontaneous
  Country: US (occurrence: US)
  Receive Date: 20160606
  Receipt Date: 20160606
  Transmission Date: 20160815
  Serious: No
  Sender: FDA-Public Use
  Company Number: US-BAYER-2016-103911

PATIENT
  Age: 83 Year
  Sex: Female

DRUGS (7)
  1. MIRALAX [Suspect]
     Active Substance: POLYETHYLENE GLYCOL 3350
     Indication: CONSTIPATION
     Dosage: UNK UNK, QD (NIGHTS STOP FOR 7 AND THEN START AGAIN)
     Route: 065
     Dates: start: 2014
  2. EYLEA [Concomitant]
     Active Substance: AFLIBERCEPT
  3. NUTRITION CARE CARTAQ 10 [Concomitant]
  4. VITAMIN D [Concomitant]
     Active Substance: CHOLECALCIFEROL
  5. IMMUNOGLOBULIN [Concomitant]
     Active Substance: HUMAN IMMUNOGLOBULIN G
  6. ASPIRIN. [Concomitant]
     Active Substance: ASPIRIN
  7. FISH OIL [Concomitant]
     Active Substance: FISH OIL

REACTIONS (3)
  - Product use issue [None]
  - Off label use [None]
  - Anal incontinence [Recovered/Resolved]

NARRATIVE: CASE EVENT DATE: 2014
